FAERS Safety Report 15074828 (Version 1)
Quarter: 2018Q2

REPORT INFORMATION
  Report Type: Spontaneous
  Country: US (occurrence: US)
  Receive Date: 20180627
  Receipt Date: 20180627
  Transmission Date: 20180711
  Serious: Yes (Other)
  Sender: FDA-Public Use
  Company Number: US-SAOL THERAPEUTICS-2017SAO01427

PATIENT
  Age: 65 Year
  Sex: Female

DRUGS (4)
  1. BACLOFEN. [Suspect]
     Active Substance: BACLOFEN
     Dosage: 12 ?G, \DAY
     Route: 037
     Dates: start: 20170801
  2. BACLOFEN. [Suspect]
     Active Substance: BACLOFEN
     Dosage: 23.62 ?G, \DAY- MAX
     Route: 037
     Dates: start: 20170801
  3. FENTANYL. [Suspect]
     Active Substance: FENTANYL
     Dosage: 299.9 ?G, \DAY
     Route: 037
     Dates: start: 20170801
  4. FENTANYL. [Suspect]
     Active Substance: FENTANYL
     Dosage: 590.4 ?G, \DAY- MAX
     Route: 037
     Dates: start: 20170801

REACTIONS (2)
  - Device failure [Recovered/Resolved]
  - Therapy non-responder [Recovered/Resolved]

NARRATIVE: CASE EVENT DATE: 20170802
